FAERS Safety Report 25179709 (Version 1)
Quarter: 2025Q2

REPORT INFORMATION
  Report Type: Report from Study
  Country: US (occurrence: US)
  Receive Date: 20250409
  Receipt Date: 20250409
  Transmission Date: 20250716
  Serious: Yes (Other)
  Sender: AMGEN
  Company Number: US-AMGEN-USASL2025048230

PATIENT
  Age: 49 Year
  Sex: Male

DRUGS (2)
  1. KRYSTEXXA [Suspect]
     Active Substance: PEGLOTICASE
     Indication: Gouty tophus
     Dosage: UNK, Q2WK
     Route: 040
     Dates: start: 20240618
  2. KRYSTEXXA [Suspect]
     Active Substance: PEGLOTICASE
     Dosage: UNK, Q2WK
     Route: 040
     Dates: start: 20250403

REACTIONS (2)
  - Blood glucose increased [Unknown]
  - Spinal operation [Unknown]

NARRATIVE: CASE EVENT DATE: 20250307
